FAERS Safety Report 8888832 (Version 1)
Quarter: 2012Q4

REPORT INFORMATION
  Report Type: 
  Country: IN (occurrence: IN)
  Receive Date: 20121106
  Receipt Date: 20121106
  Transmission Date: 20130627
  Serious: Yes (Other)
  Sender: FDA-Public Use
  Company Number: PHHY2012IN099022

PATIENT
  Sex: Male

DRUGS (7)
  1. CIPROFLOXACIN [Suspect]
     Indication: MENINGITIS TUBERCULOUS
  2. ETHAMBUTOL [Suspect]
     Indication: MENINGITIS TUBERCULOUS
  3. ISONIAZID [Suspect]
     Indication: MENINGITIS TUBERCULOUS
  4. RIFAMPICIN [Suspect]
     Indication: MENINGITIS TUBERCULOUS
  5. PYRAZINAMIDE [Suspect]
     Indication: MENINGITIS TUBERCULOUS
  6. STREPTOMYCIN [Suspect]
     Indication: MENINGITIS TUBERCULOUS
  7. STEROIDS [Suspect]
     Indication: MENINGITIS TUBERCULOUS

REACTIONS (10)
  - Tuberculoma of central nervous system [Unknown]
  - Hypothalamic enlargement [Unknown]
  - Brain oedema [Unknown]
  - Hydrocephalus [Unknown]
  - Optic atrophy [Unknown]
  - Visual impairment [Unknown]
  - Diabetes insipidus [Unknown]
  - Polydipsia [Unknown]
  - Polyuria [Unknown]
  - Granuloma [Unknown]
